FAERS Safety Report 6013222-3 (Version None)
Quarter: 2008Q4

REPORT INFORMATION
  Report Type: 
  Country: None (occurrence: None)
  Receive Date: 20081218
  Receipt Date: 20081218
  Transmission Date: 20090506
  Serious: Yes (Life-Threatening, Hospitalization)
  Sender: FDA-Public Use
  Company Number: None

PATIENT
  Age: 50 Year
  Sex: Male
  Weight: 113.3993 kg

DRUGS (1)
  1. CIPROFLOXACIN [Suspect]
     Indication: LUNG INFECTION
     Dosage: ONE TABLET TWICE A DAY PO TWO DAYS
     Route: 048
     Dates: start: 20081215, end: 20081216

REACTIONS (2)
  - ANAPHYLACTIC REACTION [None]
  - DYSPNOEA [None]
